FAERS Safety Report 18570392 (Version 1)
Quarter: 2020Q4

REPORT INFORMATION
  Report Type: Report from Study
  Country: US (occurrence: US)
  Receive Date: 20201202
  Receipt Date: 20201202
  Transmission Date: 20210114
  Serious: Yes (Other)
  Sender: FDA-Public Use
  Company Number: US-GW PHARMA-201902USGW0254

PATIENT

DRUGS (7)
  1. VIMPAT [Concomitant]
     Active Substance: LACOSAMIDE
     Indication: TUBEROUS SCLEROSIS COMPLEX
     Dosage: 200 MILLIGRAM, QD
     Route: 048
     Dates: start: 20180824
  2. DEPAKOTE [Concomitant]
     Active Substance: DIVALPROEX SODIUM
     Indication: TUBEROUS SCLEROSIS COMPLEX
     Dosage: 500 MILLIGRAM, TID
     Route: 048
     Dates: start: 20181221, end: 20190205
  3. EPIDIOLEX [Suspect]
     Active Substance: CANNABIDIOL
     Indication: TUBEROUS SCLEROSIS COMPLEX
     Dosage: 48 MG/KG, 2400 MILLIGRAM, QD
     Route: 048
     Dates: start: 20180312, end: 20190204
  4. VIMPAT [Concomitant]
     Active Substance: LACOSAMIDE
     Dosage: 350 MILLIGRAM, QD
     Route: 048
     Dates: start: 20180912
  5. EPIDIOLEX [Suspect]
     Active Substance: CANNABIDIOL
     Dosage: 45 MG/KG, 2250 MILLIGRAM, QD
     Route: 048
     Dates: start: 20190204
  6. DIASTAT [DIAZEPAM] [Concomitant]
     Indication: TUBEROUS SCLEROSIS COMPLEX
     Dosage: 15 MILLIGRAM, PRN
     Route: 054
     Dates: start: 20180816
  7. VITAMIN D [VITAMIN D NOS] [Concomitant]
     Active Substance: VITAMIN D NOS
     Indication: VITAMIN D DECREASED
     Dosage: 50000 IU, MONTHLY
     Route: 048
     Dates: start: 20160202

REACTIONS (4)
  - Blood bilirubin increased [Recovered/Resolved]
  - Alanine aminotransferase increased [Recovered/Resolved]
  - Platelet count decreased [Recovered/Resolved]
  - Aspartate aminotransferase increased [Recovered/Resolved]

NARRATIVE: CASE EVENT DATE: 20190204
